FAERS Safety Report 9560358 (Version 3)
Quarter: 2013Q4

REPORT INFORMATION
  Report Type: Spontaneous
  Country: US (occurrence: US)
  Receive Date: 20130927
  Receipt Date: 20131028
  Transmission Date: 20140711
  Serious: Yes (Other)
  Sender: FDA-Public Use
  Company Number: US-009507513-1309USA009577

PATIENT
  Sex: Female

DRUGS (3)
  1. VICTRELIS [Suspect]
     Indication: HEPATITIS C
     Dosage: 200 MG, TID
     Route: 048
     Dates: start: 20130819, end: 20130902
  2. RIBAPAK [Suspect]
     Dosage: 800 MG, AS DIRECTED
     Route: 048
     Dates: start: 20130722, end: 20130902
  3. PEGASYS [Suspect]
     Indication: CHRONIC HEPATITIS C
     Dosage: 180 MICROGRAM, QW
     Route: 058
     Dates: start: 20130722, end: 20130827

REACTIONS (18)
  - Swollen tongue [Unknown]
  - Hypersensitivity [Unknown]
  - Abasia [Unknown]
  - Dyspraxia [Unknown]
  - Sinusitis [Unknown]
  - Hypertension [Unknown]
  - Fatigue [Recovered/Resolved]
  - Epistaxis [Unknown]
  - Pain [Unknown]
  - Hypotension [Unknown]
  - Depression [Unknown]
  - Musculoskeletal pain [Unknown]
  - Asthenia [Unknown]
  - Sleep disorder [Unknown]
  - Aphagia [Unknown]
  - Influenza [Unknown]
  - Sinusitis [Unknown]
  - Anxiety [Unknown]
